FAERS Safety Report 8589520-6 (Version None)
Quarter: 2012Q3

REPORT INFORMATION
  Report Type: 
  Country: None (occurrence: None)
  Receive Date: 20120813
  Receipt Date: 20120806
  Transmission Date: 20120928
  Serious: Yes (Other)
  Sender: FDA-Public Use
  Company Number: ES-ELI_LILLY_AND_COMPANY-ES201108000049

PATIENT
  Sex: Female
  Weight: 60 kg

DRUGS (13)
  1. MIRTAZAPINE [Concomitant]
     Indication: MENTAL DISORDER
     Dosage: 3 DF, QD
     Route: 048
  2. PROPRANOLOL HYDROCHLORIDE [Concomitant]
     Indication: MENTAL DISORDER
     Dosage: 2 DF, QD
     Route: 048
  3. LORAZEPAM [Concomitant]
     Indication: MENTAL DISORDER
     Dosage: 5 MG, BID
     Route: 048
  4. DIACEPAN [Concomitant]
     Indication: MENTAL DISORDER
     Dosage: 3 DF, BID
     Route: 048
  5. CALCIUM CARBONATE [Concomitant]
     Indication: OSTEOPOROSIS
     Dosage: 2 DF, QD
     Route: 048
  6. IBUPROFEN [Concomitant]
     Indication: PAIN
     Dosage: UNK, PRN
     Route: 048
  7. OMEPRAZOLE [Concomitant]
     Indication: ABDOMINAL DISCOMFORT
     Dosage: 1 DF, BID
     Route: 048
  8. ACETAMINOPHEN [Concomitant]
     Indication: PAIN
     Dosage: UNK, PRN
     Route: 048
  9. CITALOPRAM [Concomitant]
     Indication: MENTAL DISORDER
     Dosage: 1 DF, QD
     Route: 048
  10. ENOXAPARIN SODIUM [Concomitant]
     Indication: THERAPEUTIC PROCEDURE
     Dosage: 1 DF, QD
     Route: 058
     Dates: start: 20110723
  11. FORTEO [Suspect]
     Indication: OSTEOPOROSIS
     Dosage: 20 UG, QD
     Route: 058
     Dates: start: 20100615, end: 20120601
  12. ENALAPRIL MALEATE [Concomitant]
     Indication: HYPERTENSION
     Dosage: 2 DF, BID
     Route: 048
  13. NOLOTIL [Concomitant]
     Indication: PAIN
     Dosage: UNK, PRN
     Route: 048

REACTIONS (6)
  - GENERALISED OEDEMA [None]
  - MENTAL DISORDER [None]
  - FALL [None]
  - PATELLA FRACTURE [None]
  - WEIGHT INCREASED [None]
  - MICTURITION URGENCY [None]
